FAERS Safety Report 5950513-6 (Version None)
Quarter: 2008Q4

REPORT INFORMATION
  Report Type: 
  Country: None (occurrence: None)
  Receive Date: 20081022
  Receipt Date: 20080701
  Transmission Date: 20090506
  Serious: No
  Sender: FDA-Public Use
  Company Number: SPV1-2008-01425

PATIENT
  Age: 55 Year
  Sex: Female
  Weight: 59 kg

DRUGS (5)
  1. VYVANSE [Suspect]
     Indication: ATTENTION DEFICIT/HYPERACTIVITY DISORDER
     Dosage: HALF 50 MG CAPSULE, 1X/DAY:QD, ORAL ; 50 MG, 1X/DAY:QD, ORAL
     Route: 048
     Dates: start: 20080627, end: 20080627
  2. VYVANSE [Suspect]
     Indication: ATTENTION DEFICIT/HYPERACTIVITY DISORDER
     Dosage: HALF 50 MG CAPSULE, 1X/DAY:QD, ORAL ; 50 MG, 1X/DAY:QD, ORAL
     Route: 048
     Dates: start: 20080628
  3. METHADONE HCL [Concomitant]
  4. KLONOPIN [Concomitant]
  5. SEROQUEL [Concomitant]

REACTIONS (11)
  - ANXIETY [None]
  - CHILLS [None]
  - DISTURBANCE IN ATTENTION [None]
  - DRUG PRESCRIBING ERROR [None]
  - DYSPNOEA [None]
  - HYPERHIDROSIS [None]
  - LOGORRHOEA [None]
  - NAUSEA [None]
  - PALPITATIONS [None]
  - PSYCHOMOTOR HYPERACTIVITY [None]
  - TREMOR [None]
